FAERS Safety Report 10976864 (Version 2)
Quarter: 2015Q2

REPORT INFORMATION
  Report Type: Spontaneous
  Country: CH (occurrence: CH)
  Receive Date: 20150401
  Receipt Date: 20150403
  Transmission Date: 20150821
  Serious: Yes (Other)
  Sender: FDA-Public Use
  Company Number: CH-PFIZER INC-2015108445

PATIENT
  Age: 63 Year
  Sex: Male

DRUGS (1)
  1. LYRICA [Suspect]
     Active Substance: PREGABALIN
     Indication: POLYNEUROPATHY
     Dosage: 25 MG, DAILY

REACTIONS (1)
  - Hepatic neoplasm [Unknown]
